FAERS Safety Report 20237417 (Version 4)
Quarter: 2022Q1

REPORT INFORMATION
  Report Type: Spontaneous
  Country: JP (occurrence: JP)
  Receive Date: 20211228
  Receipt Date: 20220204
  Transmission Date: 20220423
  Serious: Yes (Hospitalization)
  Sender: FDA-Public Use
  Company Number: JP-UCBJ-CD202111403UCBPHAPROD

PATIENT
  Age: 72 Year
  Sex: Male
  Weight: 68.2 kg

DRUGS (8)
  1. VIMPAT [Suspect]
     Active Substance: LACOSAMIDE
     Indication: Epilepsy
     Dosage: 100 MILLIGRAM, 2X/DAY (BID)
     Route: 048
     Dates: start: 20211118, end: 20211211
  2. VANCOMYCIN HYDROCHLORIDE [Suspect]
     Active Substance: VANCOMYCIN HYDROCHLORIDE
     Indication: Pneumonia
     Dosage: 0.7 GRAM, 3X/DAY (TID)
     Route: 042
     Dates: start: 20211206, end: 20211210
  3. MEROPENEM [Concomitant]
     Active Substance: MEROPENEM
     Indication: Pneumonia
     Dosage: 0.5 GRAM, 3X/DAY (TID)
     Route: 042
     Dates: start: 20211206, end: 20211210
  4. CARBOCYSTEINE [Concomitant]
     Active Substance: CARBOCYSTEINE
     Indication: Pneumonia
     Dosage: 1500 MILLIGRAM, 3X/DAY (TID)
     Route: 048
     Dates: start: 20211030, end: 20211211
  5. AMBROXOL HYDROCHLORIDE [Concomitant]
     Active Substance: AMBROXOL HYDROCHLORIDE
     Indication: Pneumonia
     Dosage: 45 MILLIGRAM, 3X/DAY (TID)
     Route: 048
     Dates: start: 20211030, end: 20211211
  6. ROZEREM [Concomitant]
     Active Substance: RAMELTEON
     Indication: Insomnia
     Dosage: 8 MILLIGRAM, ONCE DAILY (QD)
     Route: 048
     Dates: start: 20211129
  7. BELSOMRA [Concomitant]
     Active Substance: SUVOREXANT
     Indication: Insomnia
     Dosage: 15 MILLIGRAM, ONCE DAILY (QD)
     Route: 048
     Dates: start: 20211129, end: 20211211
  8. ENALAPRIL [Concomitant]
     Active Substance: ENALAPRIL
     Indication: Hypertension
     Dosage: 5 MILLIGRAM, ONCE DAILY (QD)
     Route: 048
     Dates: start: 20211210, end: 20211211

REACTIONS (3)
  - Granulocyte count decreased [Recovering/Resolving]
  - Insomnia [Recovering/Resolving]
  - Off label use [Unknown]

NARRATIVE: CASE EVENT DATE: 20211118
